FAERS Safety Report 8306455-4 (Version None)
Quarter: 2012Q2

REPORT INFORMATION
  Report Type: 
  Country: None (occurrence: None)
  Receive Date: 20120424
  Receipt Date: 20120418
  Transmission Date: 20120825
  Serious: Yes (Other)
  Sender: FDA-Public Use
  Company Number: US-ACCORD-013075

PATIENT
  Age: 80 Year
  Sex: Female
  Weight: 70.91 kg

DRUGS (1)
  1. SIMVASTATIN [Suspect]
     Dosage: FREQUENCY: QHS. STOPPED AFTER TAKING TWO DOSES.
     Route: 048
     Dates: start: 20120404, end: 20120412

REACTIONS (3)
  - SLUGGISHNESS [None]
  - FEELING ABNORMAL [None]
  - PRODUCT SUBSTITUTION ISSUE [None]
